FAERS Safety Report 17907833 (Version 1)
Quarter: 2020Q2

REPORT INFORMATION
  Report Type: Spontaneous
  Country: DE (occurrence: DE)
  Receive Date: 20200617
  Receipt Date: 20200617
  Transmission Date: 20200714
  Serious: Yes (Hospitalization)
  Sender: FDA-Public Use
  Company Number: DE-TEVA-2020-DE-1773433

PATIENT
  Age: 75 Year
  Sex: Male

DRUGS (12)
  1. COTRIM-CT 800MG/160MG [Suspect]
     Active Substance: SULFAMETHOXAZOLE\TRIMETHOPRIM
     Dosage: 1 DOSAGE FORMS DAILY; 800/ 160 MG / WEEK, 1-0-0-0
     Route: 048
  2. EVOLOCUMAB [Suspect]
     Active Substance: EVOLOCUMAB
     Dosage: 140 MG, ACCORDING TO SCHEDULE, PEN
     Route: 058
  3. CLOPIDOGREL [Concomitant]
     Active Substance: CLOPIDOGREL BISULFATE
     Dosage: 75 MILLIGRAM DAILY; 1-0-0-0
     Route: 048
  4. PANTOPRAZOL [Concomitant]
     Active Substance: PANTOPRAZOLE SODIUM
     Dosage: 40 MILLIGRAM DAILY; 1-0-0-0
     Route: 048
  5. PREDNISONE. [Suspect]
     Active Substance: PREDNISONE
     Dosage: 10 MILLIGRAM DAILY; 5 MG, 2-0-0-0
     Route: 048
  6. MYCOPHENOLSAURE [Suspect]
     Active Substance: MYCOPHENOLIC ACID
     Dosage: 1440 MILLIGRAM DAILY; 360 MG, 2-0-2-0.
     Route: 048
  7. CARVEDILOL. [Concomitant]
     Active Substance: CARVEDILOL
     Dosage: 12.5 MILLIGRAM DAILY; 25 MG, 0-0-0.5-0,
     Route: 048
  8. EZETIMIB [Concomitant]
     Active Substance: EZETIMIBE
     Dosage: 10 MILLIGRAM DAILY;  1-0-0-0
     Route: 048
  9. TACROLIMUS. [Suspect]
     Active Substance: TACROLIMUS
     Dosage: 3 MILLIGRAM DAILY; 0.5 MG, 3-0-3-0, CAPSULES.
     Route: 048
  10. VITAMIN D [COLECALCIFEROL] [Concomitant]
     Active Substance: CHOLECALCIFEROL
     Dosage: 1 DOSAGE FORMS DAILY; 1000 IE, 1-0-0-0
     Route: 048
  11. ATORVASTATIN [Concomitant]
     Active Substance: ATORVASTATIN
     Dosage: 40 MILLIGRAM DAILY; 0-0-1-0
     Route: 048
  12. NATRIUMHYDROGENCARBONAT [Concomitant]
     Active Substance: SODIUM BICARBONATE
     Dosage: 2 GRAM DAILY;  1-0-1-0
     Route: 048

REACTIONS (8)
  - Tooth fracture [Unknown]
  - Renal impairment [Unknown]
  - Vomiting [Unknown]
  - Diarrhoea [Unknown]
  - Nasopharyngitis [Unknown]
  - Cough [Unknown]
  - Localised infection [Unknown]
  - Chromaturia [Unknown]
